FAERS Safety Report 9411139 (Version 1)
Quarter: 2013Q3

REPORT INFORMATION
  Report Type: Spontaneous
  Country: US (occurrence: US)
  Receive Date: 20130721
  Receipt Date: 20130721
  Transmission Date: 20140515
  Serious: Yes (Other)
  Sender: FDA-Public Use
  Company Number: PHEH2013US015285

PATIENT
  Sex: 0

DRUGS (1)
  1. GILENYA [Suspect]
     Dosage: 0.5 MG, UNK
     Route: 048

REACTIONS (2)
  - Macular degeneration [Recovered/Resolved]
  - Macular oedema [Recovered/Resolved]
